FAERS Safety Report 4731581-6 (Version None)
Quarter: 2005Q3

REPORT INFORMATION
  Report Type: 
  Country: None (occurrence: None)
  Receive Date: 20050722
  Receipt Date: 20031201
  Transmission Date: 20060218
  Serious: Yes (Death)
  Sender: FDA-Public Use
  Company Number: USA-2003-0011982

PATIENT
  Age: 33 Year
  Sex: Female

DRUGS (9)
  1. HYDROMORPHONE HYDROCHLORIDE [Suspect]
  2. ACETAMINOPHEN [Suspect]
  3. VENLAFAXINE HCL [Suspect]
  4. LIDOCAINE HCL INJ [Suspect]
  5. CARISOPRODOL (CARISOPRODOL) [Suspect]
  6. MEPROBAMATE [Suspect]
  7. EPHEDRINE (EPHEDRINE) [Suspect]
  8. PSEUDOEPHEDRINE HCL [Suspect]
  9. LORCET-HD [Suspect]

REACTIONS (1)
  - MULTIPLE DRUG OVERDOSE ACCIDENTAL [None]
